FAERS Safety Report 7607310-5 (Version None)
Quarter: 2011Q3

REPORT INFORMATION
  Report Type: 
  Country: None (occurrence: None)
  Receive Date: 20110713
  Receipt Date: 20110706
  Transmission Date: 20111222
  Serious: Yes (Other)
  Sender: FDA-Public Use
  Company Number: US-PFIZER INC-2011096731

PATIENT
  Sex: Female
  Weight: 76.19 kg

DRUGS (4)
  1. XALATAN [Suspect]
     Indication: GLAUCOMA
     Dosage: 1 GTT, 1X/DAY IN LEFT EYE
     Route: 047
  2. XALATAN [Suspect]
     Indication: INTRAOCULAR PRESSURE INCREASED
  3. PROMETHAZINE [Concomitant]
     Dosage: UNK
  4. ALPHAGAN [Suspect]
     Dosage: UNK

REACTIONS (4)
  - DRUG EFFECT DECREASED [None]
  - EYE IRRITATION [None]
  - OCULAR HYPERAEMIA [None]
  - INTRAOCULAR PRESSURE INCREASED [None]
